FAERS Safety Report 4455534-0 (Version None)
Quarter: 2004Q3

REPORT INFORMATION
  Report Type: 
  Country: None (occurrence: None)
  Receive Date: 20040917
  Receipt Date: 20040903
  Transmission Date: 20050211
  Serious: Yes (Life-Threatening, Hospitalization)
  Sender: FDA-Public Use
  Company Number: AU_040807985

PATIENT
  Age: 75 Year
  Sex: Male

DRUGS (4)
  1. GEMZAR [Suspect]
     Indication: LYMPHOMA
     Dosage: 1900 MG
     Dates: start: 20040813
  2. IFOSFAMIDE [Suspect]
     Indication: LYMPHOMA
     Dosage: 5.8 G
     Dates: start: 20040813
  3. NAVELBINE [Suspect]
     Indication: LYMPHOMA
     Dosage: 48 MG
     Dates: start: 20040813
  4. PEGFILGRASTIM [Suspect]
     Indication: LYMPHOMA
     Dosage: 6 MG
     Dates: start: 20040821

REACTIONS (14)
  - ATRIAL FIBRILLATION [None]
  - CATHETER SITE INFECTION [None]
  - CATHETER SITE INFLAMMATION [None]
  - CORYNEBACTERIUM INFECTION [None]
  - FEBRILE NEUTROPENIA [None]
  - FLUID RETENTION [None]
  - HAEMOGLOBIN DECREASED [None]
  - MALIGNANT NEOPLASM PROGRESSION [None]
  - MUCOSAL INFLAMMATION [None]
  - NEUTROPENIC SEPSIS [None]
  - OBSTRUCTIVE AIRWAYS DISORDER [None]
  - RED BLOOD CELL COUNT DECREASED [None]
  - T-CELL LYMPHOMA [None]
  - THROMBOCYTOPENIA [None]
